FAERS Safety Report 16703886 (Version 2)
Quarter: 2019Q3

REPORT INFORMATION
  Report Type: Spontaneous
  Country: AR (occurrence: AR)
  Receive Date: 20190814
  Receipt Date: 20190923
  Transmission Date: 20191004
  Serious: No
  Sender: FDA-Public Use
  Company Number: AR-009507513-1908ARG003596

PATIENT
  Age: 79 Year
  Sex: Female

DRUGS (1)
  1. ZEPATIER [Suspect]
     Active Substance: ELBASVIR\GRAZOPREVIR
     Indication: HEPATITIS C
     Dosage: 1 TABLET DAILY
     Dates: start: 20181204, end: 20190326

REACTIONS (4)
  - Hepatitis C RNA fluctuation [Unknown]
  - Insomnia [Recovered/Resolved]
  - Therapy non-responder [Unknown]
  - Asthenia [Recovered/Resolved]

NARRATIVE: CASE EVENT DATE: 201906
